FAERS Safety Report 9852245 (Version 1)
Quarter: 2014Q1

REPORT INFORMATION
  Report Type: Spontaneous
  Country: US (occurrence: None)
  Receive Date: 20140127
  Receipt Date: 20140127
  Transmission Date: 20141002
  Serious: Yes (Hospitalization)
  Sender: FDA-Public Use
  Company Number: 2009S1006482

PATIENT
  Age: 42 Year
  Sex: Male
  Weight: 72 kg

DRUGS (4)
  1. FLEET PHOSPHO-SODA [Suspect]
     Indication: COLONOSCOPY
     Dates: start: 20040121, end: 20040122
  2. ACIPHEX (RABEPRAZOLE SODIUM) [Concomitant]
  3. BENICAR (OLMESARTAN MEDOXOMIL) [Concomitant]
  4. LESCOL (FLUVASTATIN SODIUM) [Concomitant]

REACTIONS (5)
  - Renal failure [None]
  - Hypovolaemia [None]
  - Hypotension [None]
  - Viral infection [None]
  - Dialysis [None]
